FAERS Safety Report 17632508 (Version 1)
Quarter: 2020Q2

REPORT INFORMATION
  Report Type: Spontaneous
  Country: FR (occurrence: FR)
  Receive Date: 20200406
  Receipt Date: 20200406
  Transmission Date: 20200713
  Serious: Yes (Hospitalization)
  Sender: FDA-Public Use
  Company Number: FR-ALLERGAN-2014346US

PATIENT
  Sex: Male
  Weight: 48 kg

DRUGS (14)
  1. FUMAFER [Concomitant]
     Active Substance: FERROUS FUMARATE
  2. ALPRAZOLAM EG [Concomitant]
     Active Substance: ALPRAZOLAM
  3. PRIMPERAN [Concomitant]
     Active Substance: METOCLOPRAMIDE HYDROCHLORIDE
  4. PARACETAMOL B BRAUN [Concomitant]
     Active Substance: ACETAMINOPHEN
  5. MORPHINE RENAUDIN [Concomitant]
     Active Substance: MORPHINE
  6. FUROSEMIDE RENAUDIN [Concomitant]
     Active Substance: FUROSEMIDE
  7. CEFTAROLINE FOSAMIL - BP [Suspect]
     Active Substance: CEFTAROLINE FOSAMIL
     Indication: STAPHYLOCOCCAL BACTERAEMIA
     Dosage: 1200 MG, QD
     Route: 042
     Dates: start: 20200226, end: 20200306
  8. PHOSPHONEUROS [Concomitant]
     Active Substance: CALCIUM PHOSPHATE, DIBASIC, ANHYDROUS\MAGNESIUM GLYCEROPHOSPHATE\PHOSPHORIC ACID\SODIUM PHOSPHATE, DIBASIC
  9. FLECAINE [Concomitant]
     Active Substance: FLECAINIDE
  10. LOVENOX [Concomitant]
     Active Substance: ENOXAPARIN SODIUM
  11. DAPTOMYCINE ACCORD [Suspect]
     Active Substance: DAPTOMYCIN
     Indication: STAPHYLOCOCCAL BACTERAEMIA
     Dosage: 500 MG, QD
     Route: 042
     Dates: start: 20200221, end: 20200226
  12. LANSOPRAZOLE MYLAN [Concomitant]
     Active Substance: LANSOPRAZOLE
  13. IMIPENEM/CILASTATINE [Suspect]
     Active Substance: CILASTATIN SODIUM\IMIPENEM
     Indication: STAPHYLOCOCCAL BACTERAEMIA
     Dosage: 1 DF, QD
     Route: 042
     Dates: start: 20200217, end: 20200225
  14. SOMATULINE [Concomitant]
     Active Substance: LANREOTIDE ACETATE

REACTIONS (3)
  - Disorientation [Recovered/Resolved]
  - Somnolence [Recovering/Resolving]
  - Encephalopathy [Recovered/Resolved]

NARRATIVE: CASE EVENT DATE: 20200303
